FAERS Safety Report 8798306 (Version 2)
Quarter: 2015Q2

REPORT INFORMATION
  Report Type: Report from Study
  Country: US (occurrence: US)
  Receive Date: 20120920
  Receipt Date: 20150619
  Transmission Date: 20150821
  Serious: Yes (Death)
  Sender: FDA-Public Use
  Company Number: US-ROCHE-1125956

PATIENT
  Sex: Male
  Weight: 63 kg

DRUGS (11)
  1. CARBOPLATIN. [Concomitant]
     Active Substance: CARBOPLATIN
     Dosage: RECEIVED ON 18/APR/2007
     Route: 042
  2. ARANESP [Concomitant]
     Active Substance: DARBEPOETIN ALFA
     Route: 065
  3. CARBOPLATIN. [Concomitant]
     Active Substance: CARBOPLATIN
     Dosage: RECEIVED ON 29/DEC/2006, 26/JAN/2007,  23/FEB/2007
     Route: 042
  4. TYLENOL [Concomitant]
     Active Substance: ACETAMINOPHEN
  5. AVASTIN [Suspect]
     Active Substance: BEVACIZUMAB
     Indication: BRAIN NEOPLASM MALIGNANT
     Dosage: ALSO RECEIVED ON 16/OCT/2006, 31/OCT/2006, 14/NOV/2006, 28/NOV/2006, 12/DEC/2006,  15/MAY/2007, 31/M
     Route: 042
     Dates: start: 20061002
  6. ZOFRAN [Concomitant]
     Active Substance: ONDANSETRON HYDROCHLORIDE
     Dosage: RECEIVED ON 02/OCT/2006, 31/OCT/2006, 28/NOV/2006, 29/DEC/2006, 26/JAN/2007,  23/FEB/2007, 18/APR/20
     Route: 042
  7. CARBOPLATIN. [Concomitant]
     Active Substance: CARBOPLATIN
     Dosage: RECEIVED ON 02/OCT/2006, 31/OCT/2006, 28/NOV/2006
     Route: 042
  8. CARBOPLATIN. [Concomitant]
     Active Substance: CARBOPLATIN
     Dosage: RECEIVED ON 15/MAY/2007
     Route: 042
  9. DECADRON [Concomitant]
     Active Substance: DEXAMETHASONE
     Dosage: RECEIVED ON 29/DEC/2006, 26/JAN/2007,  23/FEB/2007, 18/APR/2007, 15/MAY/2007
     Route: 042
  10. AVASTIN [Suspect]
     Active Substance: BEVACIZUMAB
     Dosage: RECEIVED ON 29/DEC/2006, 09/JAN/2007, 26/JAN/2007, 06/FEB/2007, 23/FEB/2007, 06/MAR/2007, 18/APR/200
     Route: 042
  11. DECADRON [Concomitant]
     Active Substance: DEXAMETHASONE
     Dosage: RECEIVED ON 02/OCT/2006, 31/OCT/2006, 28/NOV/2006
     Route: 042

REACTIONS (5)
  - Anxiety [Unknown]
  - Death [Fatal]
  - Off label use [Unknown]
  - Disease progression [Unknown]
  - Haemorrhage [Unknown]
